FAERS Safety Report 23847878 (Version 1)
Quarter: 2024Q2

REPORT INFORMATION
  Report Type: Spontaneous
  Country: CN (occurrence: CN)
  Receive Date: 20240513
  Receipt Date: 20240513
  Transmission Date: 20240716
  Serious: Yes (Hospitalization, Other)
  Sender: FDA-Public Use
  Company Number: CN-PFIZER INC-PV202400060771

PATIENT
  Age: 21 Year
  Sex: Female
  Weight: 62.5 kg

DRUGS (1)
  1. METHOTREXATE SODIUM [Suspect]
     Active Substance: METHOTREXATE SODIUM
     Indication: Ectopic pregnancy termination
     Dosage: 75 MG, 1X/DAY
     Route: 030
     Dates: start: 20240426, end: 20240426

REACTIONS (5)
  - Liver injury [Not Recovered/Not Resolved]
  - Nausea [Recovering/Resolving]
  - Vomiting [Recovering/Resolving]
  - Eating disorder [Recovering/Resolving]
  - Off label use [Unknown]

NARRATIVE: CASE EVENT DATE: 20240426
